FAERS Safety Report 17291345 (Version 1)
Quarter: 2020Q1

REPORT INFORMATION
  Report Type: Spontaneous
  Country: US (occurrence: US)
  Receive Date: 20200121
  Receipt Date: 20200121
  Transmission Date: 20200409
  Serious: Yes (Other)
  Sender: FDA-Public Use
  Company Number: US-CIPLA LTD.-2020US00333

PATIENT

DRUGS (3)
  1. SERTRALINE [Suspect]
     Active Substance: SERTRALINE HYDROCHLORIDE
     Indication: VERTIGO
     Dosage: 100 MILLIGRAM, QD, (ONE TABLET BY MOUTH EVERY DAY)
     Route: 048
     Dates: start: 20191121
  2. HYDROXYZINE [Concomitant]
     Active Substance: HYDROXYZINE HYDROCHLORIDE
     Indication: PRURITUS
     Dosage: UNK
     Route: 065
  3. MECLIZINE [Concomitant]
     Active Substance: MECLIZINE HYDROCHLORIDE
     Indication: VERTIGO
     Dosage: UNK, TID
     Route: 065

REACTIONS (18)
  - Feeling abnormal [Unknown]
  - Anxiety [Unknown]
  - Dizziness [Unknown]
  - Critical illness [Unknown]
  - Agitation [Unknown]
  - Visual impairment [Unknown]
  - Eating disorder [Unknown]
  - Gait disturbance [Unknown]
  - Depression [Unknown]
  - Pruritus [Unknown]
  - Nausea [Unknown]
  - Product use in unapproved indication [Unknown]
  - Confusional state [Unknown]
  - Irritability [Unknown]
  - Insomnia [Unknown]
  - Fear [Unknown]
  - Off label use [Unknown]
  - Panic attack [Unknown]

NARRATIVE: CASE EVENT DATE: 20191121
